FAERS Safety Report 6207709-8 (Version None)
Quarter: 2009Q2

REPORT INFORMATION
  Report Type: 
  Country: None (occurrence: None)
  Receive Date: 20090528
  Receipt Date: 20090520
  Transmission Date: 20091009
  Serious: Yes (Death)
  Sender: FDA-Public Use
  Company Number: BE-MERCK-0905BEL00017

PATIENT
  Age: 67 Year
  Sex: Male
  Weight: 65 kg

DRUGS (8)
  1. CANCIDAS [Suspect]
     Indication: PYREXIA
     Route: 041
     Dates: start: 20080723, end: 20080723
  2. CANCIDAS [Suspect]
     Route: 041
     Dates: start: 20080724, end: 20080724
  3. AMPHOTERICIN B [Concomitant]
     Route: 041
     Dates: start: 20080712, end: 20080712
  4. AMPHOTERICIN B [Concomitant]
     Route: 041
     Dates: start: 20080713, end: 20080715
  5. FLUCONAZOLE [Concomitant]
     Route: 041
     Dates: start: 20080716, end: 20080720
  6. VORICONAZOLE [Concomitant]
     Route: 041
     Dates: start: 20080721, end: 20080721
  7. VORICONAZOLE [Concomitant]
     Route: 041
     Dates: start: 20080722, end: 20080723
  8. MEROPENEM [Concomitant]
     Route: 041

REACTIONS (2)
  - ORGAN FAILURE [None]
  - VIRAL INFECTION [None]
